FAERS Safety Report 10930512 (Version 1)
Quarter: 2015Q1

REPORT INFORMATION
  Report Type: Spontaneous
  Country: US (occurrence: None)
  Receive Date: 20150211
  Receipt Date: 20150211
  Transmission Date: 20150721
  Serious: Yes (Other)
  Sender: FDA-Public Use
  Company Number: 2182816

PATIENT
  Age: 53 Year
  Sex: Male

DRUGS (5)
  1. CEFAZOLIN [Concomitant]
     Active Substance: CEFAZOLIN
  2. ONDANSETRON [Concomitant]
     Active Substance: ONDANSETRON
  3. MIDAZOLAM [Concomitant]
     Active Substance: MIDAZOLAM\MIDAZOLAM HYDROCHLORIDE
  4. PROPOFOL. [Concomitant]
     Active Substance: PROPOFOL
  5. BUPIVACAINE HCL 0.75% IN DEX 8.25% INJ, USP  (BUPIV. SPINAL) (BUPIVACAINE HYDROCHLORIDE) [Suspect]
     Active Substance: BUPIVACAINE HYDROCHLORIDE\DEXTROSE
     Indication: SPINAL ANAESTHESIA
     Route: 037
     Dates: start: 20140129, end: 20140129

REACTIONS (1)
  - Drug effect incomplete [None]

NARRATIVE: CASE EVENT DATE: 20140129
